FAERS Safety Report 9781619 (Version 2)
Quarter: 2014Q1

REPORT INFORMATION
  Report Type: Spontaneous
  Country: US (occurrence: US)
  Receive Date: 20131224
  Receipt Date: 20140212
  Transmission Date: 20141002
  Serious: Yes (Hospitalization)
  Sender: FDA-Public Use
  Company Number: US-ACORDA-ACO_100851_2013

PATIENT
  Sex: Female

DRUGS (3)
  1. AMPYRA [Suspect]
     Indication: MULTIPLE SCLEROSIS
     Dosage: UNK
     Route: 048
     Dates: start: 201110
  2. 4-AP [Suspect]
     Indication: MULTIPLE SCLEROSIS
     Dosage: UNK
     Route: 048
  3. BOTOX [Suspect]
     Indication: URINARY INCONTINENCE
     Dosage: UNK

REACTIONS (3)
  - Grand mal convulsion [Unknown]
  - Urinary incontinence [Unknown]
  - Haemorrhage [Unknown]
